FAERS Safety Report 16266004 (Version 3)
Quarter: 2019Q2

REPORT INFORMATION
  Report Type: Report from Study
  Country: FR (occurrence: FR)
  Receive Date: 20190502
  Receipt Date: 20190515
  Transmission Date: 20190711
  Serious: Yes (Hospitalization)
  Sender: FDA-Public Use
  Company Number: FR-JNJFOC-20190435361

PATIENT
  Age: 73 Year
  Sex: Male
  Weight: 94 kg

DRUGS (18)
  1. ABIRATERONE ACETATE. [Suspect]
     Active Substance: ABIRATERONE ACETATE
     Indication: PROSTATE CANCER METASTATIC
     Route: 048
     Dates: end: 20181112
  2. PREDNISONE. [Suspect]
     Active Substance: PREDNISONE
     Indication: PROSTATE CANCER METASTATIC
     Dosage: 82.5 MG
     Route: 048
     Dates: start: 20141211, end: 20181112
  3. MICARDISPLUS [Concomitant]
     Active Substance: HYDROCHLOROTHIAZIDE\TELMISARTAN
     Route: 065
  4. ALDACTONE [Concomitant]
     Active Substance: SPIRONOLACTONE
     Route: 065
  5. METFORMIN [Concomitant]
     Active Substance: METFORMIN HYDROCHLORIDE
     Indication: TYPE 1 DIABETES MELLITUS
     Route: 065
  6. TARDYFERON [Concomitant]
     Active Substance: FERROUS SULFATE
     Route: 065
  7. CETRIZINE [Concomitant]
     Active Substance: CETIRIZINE HYDROCHLORIDE
     Route: 065
  8. ENANTONE LP [Suspect]
     Active Substance: LEUPROLIDE ACETATE
     Indication: PROSTATE CANCER METASTATIC
     Route: 058
     Dates: start: 20140905, end: 2018
  9. ABIRATERONE ACETATE. [Suspect]
     Active Substance: ABIRATERONE ACETATE
     Indication: PROSTATE CANCER METASTATIC
     Route: 048
     Dates: start: 20141211
  10. LOXEN [Concomitant]
     Route: 065
  11. UVEDOSE [Concomitant]
     Active Substance: CHOLECALCIFEROL
     Route: 065
  12. MACROGOL [Concomitant]
     Active Substance: POLYETHYLENE GLYCOLS
     Route: 065
  13. CLOPIDOGREL [Concomitant]
     Active Substance: CLOPIDOGREL BISULFATE
     Route: 065
  14. TOVIAZ [Concomitant]
     Active Substance: FESOTERODINE FUMARATE
     Route: 065
  15. DIFFU K [Concomitant]
     Active Substance: POTASSIUM CHLORIDE
     Route: 065
  16. ESCITALOPRAM [Concomitant]
     Active Substance: ESCITALOPRAM OXALATE
     Route: 065
  17. DOLIPRANE [Concomitant]
     Active Substance: ACETAMINOPHEN
     Route: 065
  18. LEVOTHYROX [Concomitant]
     Active Substance: LEVOTHYROXINE
     Route: 065

REACTIONS (1)
  - Sepsis [Recovered/Resolved]

NARRATIVE: CASE EVENT DATE: 20190103
